FAERS Safety Report 17632172 (Version 1)
Quarter: 2020Q2

REPORT INFORMATION
  Report Type: Spontaneous
  Country: US (occurrence: US)
  Receive Date: 20200406
  Receipt Date: 20200406
  Transmission Date: 20200713
  Serious: No
  Sender: FDA-Public Use
  Company Number: US-SHIRE-US202012048

PATIENT

DRUGS (1)
  1. ADDERALL XR [Suspect]
     Active Substance: AMPHETAMINE ASPARTATE\AMPHETAMINE SULFATE\DEXTROAMPHETAMINE SACCHARATE\DEXTROAMPHETAMINE SULFATE
     Indication: PRODUCT USED FOR UNKNOWN INDICATION
     Route: 065

REACTIONS (9)
  - Asthenia [Unknown]
  - Dry eye [Unknown]
  - Headache [Unknown]
  - Product physical issue [Unknown]
  - Product colour issue [Unknown]
  - Heart rate decreased [Unknown]
  - Tinnitus [Unknown]
  - Product odour abnormal [Unknown]
  - Upper-airway cough syndrome [Unknown]
